FAERS Safety Report 12720106 (Version 5)
Quarter: 2018Q1

REPORT INFORMATION
  Report Type: Spontaneous
  Country: US (occurrence: US)
  Receive Date: 20160907
  Receipt Date: 20180110
  Transmission Date: 20180508
  Serious: No
  Sender: FDA-Public Use
  Company Number: US-PFIZER INC-2016417778

PATIENT
  Age: 5 Year
  Sex: Female

DRUGS (8)
  1. GENOTROPIN MQ [Suspect]
     Active Substance: SOMATROPIN
     Dosage: 0.4 MG, 1X/DAY
     Dates: start: 201511
  2. LEVOTHYROXINE. [Concomitant]
     Active Substance: LEVOTHYROXINE
     Dosage: UNK
  3. HYDROCORTISONE. [Concomitant]
     Active Substance: HYDROCORTISONE
     Dosage: UNK
  4. GENOTROPIN MQ [Suspect]
     Active Substance: SOMATROPIN
     Indication: GROWTH HORMONE DEFICIENCY
     Dosage: 0.6 MG, DAILY(EVERY NIGHT BEFORE BED )
     Route: 030
  5. GENOTROPIN MQ [Suspect]
     Active Substance: SOMATROPIN
     Dosage: 0.3 MG, ALTERNATE DAY
     Route: 030
  6. GENOTROPIN MQ [Suspect]
     Active Substance: SOMATROPIN
     Dosage: 0.4 MG, DAILY
     Route: 058
     Dates: start: 20160118, end: 20171204
  7. GENOTROPIN MQ [Suspect]
     Active Substance: SOMATROPIN
     Dosage: 0.6 MG, ALTERNATE DAY(EVERY OTHER DAY)
     Route: 030
  8. DESMOPRESSIN [Concomitant]
     Active Substance: DESMOPRESSIN
     Indication: DIABETES INSIPIDUS
     Dosage: 0.3 MG, PILL

REACTIONS (4)
  - Abdominal discomfort [Recovered/Resolved]
  - Incorrect route of drug administration [Unknown]
  - Vomiting [Recovered/Resolved]
  - Malaise [Unknown]

NARRATIVE: CASE EVENT DATE: 20151111
